FAERS Safety Report 18002022 (Version 2)
Quarter: 2020Q3

REPORT INFORMATION
  Report Type: Report from Study
  Country: None (occurrence: CO)
  Receive Date: 20200710
  Receipt Date: 20200729
  Transmission Date: 20201103
  Serious: Yes (Death, Other)
  Sender: FDA-Public Use
  Company Number: CO-ABBVIE-20K-036-3454549-00

PATIENT
  Age: 20 Year
  Sex: Female
  Weight: 40 kg

DRUGS (2)
  1. HUMIRA [Suspect]
     Active Substance: ADALIMUMAB
     Indication: ANKYLOSING SPONDYLITIS
     Route: 058
     Dates: end: 20200508
  2. HUMIRA [Suspect]
     Active Substance: ADALIMUMAB
     Indication: ANKYLOSING SPONDYLITIS
     Route: 058
     Dates: start: 20170615

REACTIONS (11)
  - Peritonitis [Fatal]
  - Anaemia [Not Recovered/Not Resolved]
  - Abdominal pain upper [Not Recovered/Not Resolved]
  - Bone pain [Not Recovered/Not Resolved]
  - Underweight [Not Recovered/Not Resolved]
  - Vital signs measurement [Unknown]
  - Vomiting [Not Recovered/Not Resolved]
  - Eating disorder [Unknown]
  - Surgery [Unknown]
  - Urinary tract infection [Not Recovered/Not Resolved]
  - Tuberculosis [Not Recovered/Not Resolved]

NARRATIVE: CASE EVENT DATE: 2020
